FAERS Safety Report 9862626 (Version 1)
Quarter: 2014Q1

REPORT INFORMATION
  Report Type: Spontaneous
  Country: US (occurrence: US)
  Receive Date: 20140203
  Receipt Date: 20140203
  Transmission Date: 20141002
  Serious: Yes (Death, Other)
  Sender: FDA-Public Use
  Company Number: CHPA2014US001546

PATIENT
  Age: 43 Year
  Sex: Female

DRUGS (2)
  1. ACETAM/DIPHEN CITRATE [Suspect]
     Dosage: 96 DF, ONCE/SINGLE
     Route: 048
  2. CITALOPRAM [Concomitant]
     Route: 065

REACTIONS (15)
  - Completed suicide [Fatal]
  - Toxicity to various agents [Fatal]
  - Hepatic necrosis [Fatal]
  - Brain oedema [Unknown]
  - Pulmonary oedema [Unknown]
  - Tachypnoea [Unknown]
  - Haematuria [Unknown]
  - Haemorrhage [Unknown]
  - Tachycardia [Unknown]
  - Tonsillar disorder [Unknown]
  - Areflexia [Unknown]
  - Agitation [Unknown]
  - Mental status changes [Unknown]
  - Pain [Unknown]
  - Hypopnoea [Unknown]
